FAERS Safety Report 6832536-8 (Version None)
Quarter: 2010Q3

REPORT INFORMATION
  Report Type: 
  Country: None (occurrence: None)
  Receive Date: 20100712
  Receipt Date: 20070313
  Transmission Date: 20110219
  Serious: No
  Sender: FDA-Public Use
  Company Number: US-PFIZER INC-2007020836

PATIENT
  Sex: Female
  Weight: 61.23 kg

DRUGS (8)
  1. CHANTIX [Suspect]
     Indication: SMOKING CESSATION THERAPY
     Route: 048
     Dates: start: 20070201
  2. ANTIHYPERTENSIVES [Concomitant]
  3. LIPITOR [Concomitant]
  4. ALPRAZOLAM [Concomitant]
     Indication: NERVOUSNESS
  5. TIZANIDINE HCL [Concomitant]
     Indication: BACK DISORDER
  6. FOLIC ACID [Concomitant]
  7. ACETYLSALICYLIC ACID [Concomitant]
  8. PREMARIN [Concomitant]

REACTIONS (3)
  - ABDOMINAL DISCOMFORT [None]
  - NAUSEA [None]
  - WEIGHT INCREASED [None]
